FAERS Safety Report 9146168 (Version 2)
Quarter: 2013Q1

REPORT INFORMATION
  Report Type: Spontaneous
  Country: US (occurrence: None)
  Receive Date: 20130220
  Receipt Date: 20130308
  Transmission Date: 20140127
  Serious: Yes (Death)
  Sender: FDA-Public Use
  Company Number: QSC-2013-0036

PATIENT
  Age: 64 Year
  Sex: Male

DRUGS (1)
  1. H.P. ACTHAR GEL (ADRENOCORTICOTROPIC HORMONE) GEL FOR INJECTION, 80U/ML [Suspect]
     Indication: NEPHROTIC SYNDROME
     Route: 030
     Dates: start: 201211

REACTIONS (4)
  - Acute pulmonary oedema [None]
  - Sudden death [None]
  - Respiratory failure [None]
  - Cardiac failure [None]
